FAERS Safety Report 12242772 (Version 2)
Quarter: 2016Q2

REPORT INFORMATION
  Report Type: Spontaneous
  Country: IT (occurrence: DE)
  Receive Date: 20160406
  Receipt Date: 20160422
  Transmission Date: 20160815
  Serious: Yes (Other)
  Sender: FDA-Public Use
  Company Number: DE-FRI-1000083603

PATIENT
  Age: 78 Year
  Sex: Female

DRUGS (1)
  1. MONUROL [Suspect]
     Active Substance: FOSFOMYCIN TROMETHAMINE
     Indication: CYSTITIS BACTERIAL
     Dosage: 3 DF TOTAL
     Route: 048
     Dates: start: 20160227, end: 201603

REACTIONS (3)
  - Product use issue [Recovered/Resolved]
  - Drug ineffective [Recovering/Resolving]
  - Cystitis haemorrhagic [Recovered/Resolved]

NARRATIVE: CASE EVENT DATE: 20160227
